FAERS Safety Report 22371954 (Version 1)
Quarter: 2023Q2

REPORT INFORMATION
  Report Type: Spontaneous
  Country: US (occurrence: US)
  Receive Date: 20230526
  Receipt Date: 20230526
  Transmission Date: 20230722
  Serious: Yes (Hospitalization, Other)
  Sender: FDA-Public Use
  Company Number: US-INSUD PHARMA-2305US03228

PATIENT

DRUGS (1)
  1. TESTOSTERONE [Suspect]
     Active Substance: TESTOSTERONE
     Indication: Product used for unknown indication
     Dosage: WEEKLY INJECTIONS
     Route: 030

REACTIONS (22)
  - Renal failure [Recovering/Resolving]
  - End stage renal disease [Recovering/Resolving]
  - Hypertensive cardiomyopathy [Recovering/Resolving]
  - Seizure [Recovered/Resolved]
  - Mental status changes [Recovered/Resolved]
  - Dyspnoea [Recovered/Resolved]
  - Muscle spasms [Unknown]
  - Somnolence [Unknown]
  - Fatigue [Unknown]
  - Hypersomnia [Unknown]
  - Polyuria [Unknown]
  - Polydipsia [Unknown]
  - Hyperphagia [Unknown]
  - Tremor [Recovered/Resolved]
  - Unresponsive to stimuli [Recovered/Resolved]
  - Confusional state [Recovered/Resolved]
  - Tongue biting [Recovered/Resolved]
  - Hyperphosphataemia [Unknown]
  - Encephalopathy [Recovered/Resolved]
  - Hypocalcaemia [Recovered/Resolved]
  - Metabolic acidosis [Recovered/Resolved]
  - Peripheral swelling [Recovered/Resolved]
